FAERS Safety Report 7959171 (Version 3)
Quarter: 2014Q1

REPORT INFORMATION
  Report Type: Spontaneous
  Country: US (occurrence: US)
  Receive Date: 20110525
  Receipt Date: 20140203
  Transmission Date: 20141002
  Serious: Yes (Hospitalization)
  Sender: FDA-Public Use
  Company Number: US-BIOGENIDEC-199762

PATIENT
  Age: 38 Year
  Sex: Male
  Weight: 117 kg

DRUGS (2)
  1. AVONEX [Suspect]
     Indication: MULTIPLE SCLEROSIS
     Route: 030
     Dates: start: 20040511, end: 20040604
  2. SERZONE [Concomitant]
     Indication: DEPRESSION
     Dates: end: 200405

REACTIONS (9)
  - Pyrexia [Recovered/Resolved]
  - Pain [Not Recovered/Not Resolved]
  - Asthenia [Not Recovered/Not Resolved]
  - Weight decreased [Not Recovered/Not Resolved]
  - Immune system disorder [Unknown]
  - Hepatic function abnormal [Unknown]
  - Decreased appetite [Not Recovered/Not Resolved]
  - Liver function test abnormal [Not Recovered/Not Resolved]
  - Influenza like illness [Recovered/Resolved]
